FAERS Safety Report 16962711 (Version 1)
Quarter: 2019Q4

REPORT INFORMATION
  Report Type: Spontaneous
  Country: US (occurrence: US)
  Receive Date: 20191025
  Receipt Date: 20191025
  Transmission Date: 20200122
  Serious: Yes (Hospitalization)
  Sender: FDA-Public Use
  Company Number: None

PATIENT
  Age: 61 Year
  Sex: Female

DRUGS (16)
  1. AMLODIPINE [Concomitant]
     Active Substance: AMLODIPINE BESYLATE
  2. LORATADINE. [Concomitant]
     Active Substance: LORATADINE
  3. XARELTO [Concomitant]
     Active Substance: RIVAROXABAN
  4. CAPECITABINE. [Suspect]
     Active Substance: CAPECITABINE
     Indication: NEOPLASM MALIGNANT
     Route: 048
  5. CALCIUM [Concomitant]
     Active Substance: CALCIUM
  6. BREO ELLIPTA [Concomitant]
     Active Substance: FLUTICASONE FUROATE\VILANTEROL TRIFENATATE
  7. FUROSEMIDE. [Concomitant]
     Active Substance: FUROSEMIDE
  8. MELOXICAM. [Concomitant]
     Active Substance: MELOXICAM
  9. FASLODEX [Concomitant]
     Active Substance: FULVESTRANT
  10. LANTUS [Concomitant]
     Active Substance: INSULIN GLARGINE
  11. METFORMIN [Concomitant]
     Active Substance: METFORMIN HYDROCHLORIDE
  12. NEURONTIN [Concomitant]
     Active Substance: GABAPENTIN
  13. XGEVA [Concomitant]
     Active Substance: DENOSUMAB
  14. ESOMEPRAZOLE. [Concomitant]
     Active Substance: ESOMEPRAZOLE MAGNESIUM
  15. CAPECITABINE. [Suspect]
     Active Substance: CAPECITABINE
     Route: 048
  16. VALSARTAN. [Concomitant]
     Active Substance: VALSARTAN

REACTIONS (1)
  - Lung operation [None]

NARRATIVE: CASE EVENT DATE: 20191007
